FAERS Safety Report 9517558 (Version 2)
Quarter: 2013Q3

REPORT INFORMATION
  Report Type: Spontaneous
  Country: JP (occurrence: JP)
  Receive Date: 20130911
  Receipt Date: 20130916
  Transmission Date: 20140515
  Serious: Yes (Other)
  Sender: FDA-Public Use
  Company Number: JP-009507513-1309JPN003103

PATIENT
  Age: 2 Year
  Sex: Male

DRUGS (5)
  1. DEXAMETHASONE [Suspect]
     Indication: GASTROINTESTINAL DISORDER
  2. HYDROCORTISONE SODIUM PHOSPHATE [Suspect]
     Indication: GASTROINTESTINAL DISORDER
     Dosage: THREEFOLD HIGHER THAN THE NORMAL DOSE
     Route: 042
  3. HYDROCORTISONE SODIUM PHOSPHATE [Suspect]
     Dosage: MORE THAN FOURFOLD THE NORMAL DOSE WHEN DEVELOPED SEPSIS
     Route: 042
  4. TACROLIMUS [Concomitant]
  5. PREDNISOLONE [Concomitant]

REACTIONS (3)
  - Sepsis [Unknown]
  - Hypertension [Unknown]
  - Generalised oedema [Recovering/Resolving]
